FAERS Safety Report 6433787-7 (Version None)
Quarter: 2009Q4

REPORT INFORMATION
  Report Type: 
  Country: None (occurrence: None)
  Receive Date: 20091110
  Receipt Date: 20090819
  Transmission Date: 20100525
  Serious: No
  Sender: FDA-Public Use
  Company Number: A0801107A

PATIENT
  Age: 80 Year
  Sex: Female
  Weight: 90.9 kg

DRUGS (2)
  1. ALTABAX [Suspect]
     Indication: SKIN LESION
     Route: 061
     Dates: start: 20090805, end: 20090806
  2. UNKNOWN [Concomitant]

REACTIONS (2)
  - APPLICATION SITE IRRITATION [None]
  - BURNING SENSATION [None]
